FAERS Safety Report 6465619-5 (Version None)
Quarter: 2009Q4

REPORT INFORMATION
  Report Type: 
  Country: None (occurrence: None)
  Receive Date: 20091201
  Receipt Date: 20081222
  Transmission Date: 20100525
  Serious: No
  Sender: FDA-Public Use
  Company Number: US-AMGEN-KDL317380

PATIENT
  Sex: Male

DRUGS (3)
  1. ENBREL [Suspect]
     Indication: PSORIATIC ARTHROPATHY
     Route: 058
     Dates: start: 20050301, end: 20080501
  2. ENBREL [Suspect]
     Indication: PSORIASIS
  3. METHOTREXATE [Concomitant]
     Route: 048
     Dates: start: 20050301

REACTIONS (7)
  - DRUG INEFFECTIVE [None]
  - EAR LOBE INFECTION [None]
  - EXTERNAL EAR DISORDER [None]
  - IMPAIRED HEALING [None]
  - INFECTED CYST [None]
  - PILONIDAL CYST [None]
  - POST PROCEDURAL COMPLICATION [None]
